FAERS Safety Report 9799018 (Version 2)
Quarter: 2014Q1

REPORT INFORMATION
  Report Type: Spontaneous
  Country: GB (occurrence: None)
  Receive Date: 20131231
  Receipt Date: 20140122
  Transmission Date: 20141002
  Serious: Yes (Other)
  Sender: FDA-Public Use
  Company Number: AUR-APL-2013-10816

PATIENT
  Age: 49 Year
  Sex: Male
  Weight: 75 kg

DRUGS (6)
  1. PIOGLITAZONE [Suspect]
     Indication: PRODUCT USED FOR UNKNOWN INDICATION
     Dates: start: 201305
  2. ARIPIPRAZOLE (ARIPIPRAZOLE) [Concomitant]
  3. METFORMIN [Concomitant]
  4. OLANZAPINE [Concomitant]
  5. PAROXETINE [Concomitant]
  6. SIMVASTATIN [Concomitant]

REACTIONS (1)
  - Hepatotoxicity [None]
